FAERS Safety Report 13655235 (Version 2)
Quarter: 2017Q3

REPORT INFORMATION
  Report Type: Spontaneous
  Country: US (occurrence: US)
  Receive Date: 20170615
  Receipt Date: 20170726
  Transmission Date: 20171127
  Serious: Yes (Other)
  Sender: FDA-Public Use
  Company Number: US-TEVA-777350ACC

PATIENT
  Age: 30 Year
  Sex: Female
  Weight: 88.08 kg

DRUGS (1)
  1. PARAGARD T 380A [Suspect]
     Active Substance: COPPER
     Indication: CONTRACEPTION
     Dates: start: 20170524, end: 20170606

REACTIONS (7)
  - Device dislocation [Recovered/Resolved]
  - Pelvic pain [Recovered/Resolved with Sequelae]
  - Device expulsion [Recovered/Resolved with Sequelae]
  - Asthenia [Recovering/Resolving]
  - Menorrhagia [Recovered/Resolved with Sequelae]
  - Dizziness [Recovering/Resolving]
  - Feeling hot [Recovering/Resolving]

NARRATIVE: CASE EVENT DATE: 20170605
